FAERS Safety Report 11548704 (Version 1)
Quarter: 2015Q3

REPORT INFORMATION
  Report Type: Spontaneous
  Country: US (occurrence: US)
  Receive Date: 20150924
  Receipt Date: 20150924
  Transmission Date: 20151125
  Serious: No
  Sender: FDA-Public Use
  Company Number: ALCN2015US005935

PATIENT
  Age: 79 Year
  Sex: Female
  Weight: 87.53 kg

DRUGS (3)
  1. SYSTANE BALANCE [Suspect]
     Active Substance: PROPYLENE GLYCOL
     Indication: DRY EYE
     Dosage: 1 GTT, QD AT NIGHT
     Route: 047
     Dates: start: 20140114
  2. RESTASIS [Suspect]
     Active Substance: CYCLOSPORINE
     Indication: MEIBOMIANITIS
     Dosage: 1 GTT, BID
     Route: 047
     Dates: start: 20130211
  3. XALATAN [Suspect]
     Active Substance: LATANOPROST
     Indication: GLAUCOMA
     Dosage: 1 GTT, QHS
     Route: 047
     Dates: start: 20140815

REACTIONS (4)
  - Eyelid margin crusting [Recovered/Resolved]
  - Eye discharge [Recovered/Resolved]
  - Eye disorder [Recovered/Resolved]
  - Ocular hyperaemia [Recovered/Resolved]

NARRATIVE: CASE EVENT DATE: 20150730
